FAERS Safety Report 23329747 (Version 2)
Quarter: 2023Q4

REPORT INFORMATION
  Report Type: Spontaneous
  Country: US (occurrence: US)
  Receive Date: 20231222
  Receipt Date: 20231228
  Transmission Date: 20240110
  Serious: Yes (Hospitalization, Disabling, Other)
  Sender: FDA-Public Use
  Company Number: US-GLENMARK PHARMACEUTICALS-2023GMK087323

PATIENT

DRUGS (11)
  1. ZONISAMIDE [Suspect]
     Active Substance: ZONISAMIDE
     Indication: Epilepsy
     Dosage: 125 MILLIGRAM, BID (FOR YEARS)
     Route: 048
  2. ZONISAMIDE [Suspect]
     Active Substance: ZONISAMIDE
     Dosage: 200 MILLIGRAM, BID
     Route: 048
  3. ZONISAMIDE [Suspect]
     Active Substance: ZONISAMIDE
     Indication: Epilepsy
     Dosage: 125 MILLIGRAM, BID
     Route: 048
  4. ZONISAMIDE [Suspect]
     Active Substance: ZONISAMIDE
     Dosage: 200 MILLIGRAM, BID
     Route: 048
  5. KEPPRA [Suspect]
     Active Substance: LEVETIRACETAM
     Indication: Product used for unknown indication
     Dosage: UNK
     Route: 065
  6. ATIVAN [Concomitant]
     Active Substance: LORAZEPAM
     Indication: Product used for unknown indication
     Dosage: UNK, BID
     Route: 065
  7. DIASTAT ACUDIAL [Concomitant]
     Active Substance: DIAZEPAM
     Indication: Seizure
     Dosage: UNK
     Route: 065
  8. DIASTAT ACUDIAL [Concomitant]
     Active Substance: DIAZEPAM
     Dosage: UNK
     Route: 065
  9. VIMPAT [Concomitant]
     Active Substance: LACOSAMIDE
     Indication: Seizure
     Dosage: 10 MILLILITER
     Route: 065
  10. VIMPAT [Concomitant]
     Active Substance: LACOSAMIDE
     Dosage: 16.5 MILLILITER, BID
     Route: 065
  11. VIMPAT [Concomitant]
     Active Substance: LACOSAMIDE
     Dosage: 20 MILLILITER, BID
     Route: 065

REACTIONS (18)
  - Multiple organ dysfunction syndrome [Unknown]
  - Illness [Unknown]
  - Physical disability [Unknown]
  - Loss of consciousness [Unknown]
  - Blood glucose increased [Unknown]
  - Sepsis [Unknown]
  - White blood cell count increased [Unknown]
  - Herpes virus infection [Unknown]
  - Recalled product administered [Unknown]
  - Panic attack [Unknown]
  - Dehydration [Unknown]
  - Urinary tract infection [Recovered/Resolved]
  - Hypokalaemia [Unknown]
  - Pneumonia [Recovered/Resolved]
  - Dermatitis diaper [Unknown]
  - Drug reaction with eosinophilia and systemic symptoms [Unknown]
  - Seizure [Unknown]
  - Wrong technique in product usage process [Unknown]
